FAERS Safety Report 8862541 (Version 1)
Quarter: 2012Q4

REPORT INFORMATION
  Report Type: 
  Country: US (occurrence: US)
  Receive Date: 20121026
  Receipt Date: 20121026
  Transmission Date: 20130627
  Serious: Yes (Hospitalization, Other)
  Sender: FDA-Public Use
  Company Number: US-ELI_LILLY_AND_COMPANY-US201210005906

PATIENT
  Sex: Female

DRUGS (3)
  1. HUMULIN NPH [Suspect]
     Indication: DIABETES MELLITUS
     Dosage: UNK UNK, unknown
  2. HUMULIN REGULAR [Suspect]
     Indication: DIABETES MELLITUS
     Dosage: UNK UNK, unknown
  3. HUMALOG LISPRO [Suspect]
     Indication: DIABETES MELLITUS
     Dosage: UNK, unknown

REACTIONS (9)
  - Pneumonia [Unknown]
  - Decreased appetite [Unknown]
  - Pain in extremity [Unknown]
  - Back pain [Unknown]
  - Blindness unilateral [Unknown]
  - Retinal haemorrhage [Unknown]
  - Thrombosis [Unknown]
  - Large intestine polyp [Unknown]
  - Visual acuity reduced [Not Recovered/Not Resolved]
